FAERS Safety Report 4522371-8 (Version None)
Quarter: 2004Q4

REPORT INFORMATION
  Report Type: 
  Country: None (occurrence: None)
  Receive Date: 20041207
  Receipt Date: 20041124
  Transmission Date: 20050328
  Serious: Yes (Other)
  Sender: FDA-Public Use
  Company Number: US_0409105579

PATIENT
  Age: 74 Year
  Sex: Female
  Weight: 87 kg

DRUGS (4)
  1. HUMALOG [Suspect]
     Indication: DIABETES MELLITUS
     Dates: start: 20040401, end: 20040901
  2. GLIPIZIDE [Concomitant]
  3. LANTUS [Concomitant]
  4. NOVOLIN (INSULIN HUMAN INJECTION, ISOPHANE ) [Concomitant]

REACTIONS (4)
  - CEREBROVASCULAR ACCIDENT [None]
  - CONFUSIONAL STATE [None]
  - DEFAECATION URGENCY [None]
  - PAIN [None]
